FAERS Safety Report 5085833-3 (Version None)
Quarter: 2006Q3

REPORT INFORMATION
  Report Type: 
  Country: None (occurrence: None)
  Receive Date: 20060817
  Receipt Date: 20060810
  Transmission Date: 20061208
  Serious: Yes (Death)
  Sender: FDA-Public Use
  Company Number: S06-USA-02235-01

PATIENT
  Age: 22 Year
  Sex: Female
  Weight: 90.2658 kg

DRUGS (1)
  1. LEXAPRO [Suspect]
     Indication: DEPRESSION
     Dosage: 10 MG QD PO
     Route: 048

REACTIONS (2)
  - COMPLETED SUICIDE [None]
  - DRUG EXPOSURE DURING PREGNANCY [None]
